FAERS Safety Report 5416657-2 (Version None)
Quarter: 2007Q3

REPORT INFORMATION
  Report Type: 
  Country: None (occurrence: None)
  Receive Date: 20070816
  Receipt Date: 20070731
  Transmission Date: 20080115
  Serious: Yes (Death)
  Sender: FDA-Public Use
  Company Number: JP-PURDUE-MAG_2007_0000572

PATIENT
  Age: 51 Year
  Sex: Male

DRUGS (4)
  1. OXYCODONE HCL [Suspect]
     Indication: CANCER PAIN
     Dosage: 5 MG, DAILY
     Route: 048
     Dates: start: 20070708, end: 20070708
  2. OXYCODONE HCL [Suspect]
     Dosage: 10 MG, DAILY
     Route: 048
     Dates: start: 20070706, end: 20070706
  3. OXYCODONE HCL [Suspect]
     Dosage: 5 MG, TID
     Route: 048
     Dates: start: 20070619, end: 20070706
  4. PURSENNID [Concomitant]
     Indication: CONSTIPATION PROPHYLAXIS
     Dosage: 60 MG, DAILY
     Route: 048
     Dates: start: 20070619, end: 20070707

REACTIONS (4)
  - CACHEXIA [None]
  - HEPATIC FAILURE [None]
  - HYPERHIDROSIS [None]
  - HYPOTHERMIA [None]
